FAERS Safety Report 9775241 (Version 1)
Quarter: 2013Q4

REPORT INFORMATION
  Report Type: Spontaneous
  Country: US (occurrence: None)
  Receive Date: 20131219
  Receipt Date: 20131219
  Transmission Date: 20140711
  Serious: Yes (Life-Threatening, Other)
  Sender: FDA-Public Use
  Company Number: None

PATIENT
  Age: 18 Year
  Sex: Male
  Weight: 81.65 kg

DRUGS (2)
  1. INSULIN [Suspect]
  2. INSULIN PUMP MEDTRONIC [Suspect]

REACTIONS (8)
  - Device power source issue [None]
  - Medical device complication [None]
  - Device computer issue [None]
  - Device computer issue [None]
  - Device alarm issue [None]
  - Blood glucose increased [None]
  - Device connection issue [None]
  - Product quality issue [None]
